FAERS Safety Report 4377160-4 (Version None)
Quarter: 2004Q2

REPORT INFORMATION
  Report Type: 
  Country: None (occurrence: None)
  Receive Date: 20040609
  Receipt Date: 20040225
  Transmission Date: 20050107
  Serious: No
  Sender: FDA-Public Use
  Company Number: 2004201264US

PATIENT
  Age: 68 Year
  Sex: Female

DRUGS (3)
  1. BEXTRA [Suspect]
     Indication: ARTHRALGIA
     Dosage: 10 MG, QD
     Dates: start: 20040223, end: 20040225
  2. PLENDIL [Concomitant]
  3. PREMARIN [Concomitant]

REACTIONS (9)
  - BALANCE DISORDER [None]
  - DYSPEPSIA [None]
  - FEELING HOT [None]
  - FLUSHING [None]
  - HEADACHE [None]
  - POLLAKIURIA [None]
  - PSYCHOMOTOR HYPERACTIVITY [None]
  - SLEEP DISORDER [None]
  - TACHYCARDIA [None]
